FAERS Safety Report 20825264 (Version 2)
Quarter: 2022Q2

REPORT INFORMATION
  Report Type: Report from Study
  Country: US (occurrence: US)
  Receive Date: 20220513
  Receipt Date: 20220602
  Transmission Date: 20220721
  Serious: Yes (Hospitalization)
  Sender: FDA-Public Use
  Company Number: US-CELGENE-USA-20220106046

PATIENT
  Age: 62 Year
  Sex: Female
  Weight: 80.28 kg

DRUGS (14)
  1. REVLIMID [Suspect]
     Active Substance: LENALIDOMIDE
     Indication: Plasma cell myeloma
     Dosage: 21 OUT OF 28 DAYS?EXPIRATION DATE: 30-APR-2024
     Route: 048
     Dates: start: 20210820
  2. DEXAMETHASONE [Concomitant]
     Active Substance: DEXAMETHASONE
     Indication: Product used for unknown indication
     Route: 065
  3. ASPIRIN [Concomitant]
     Active Substance: ASPIRIN
     Indication: Product used for unknown indication
     Route: 065
  4. DARZALEX [Concomitant]
     Active Substance: DARATUMUMAB
     Indication: Product used for unknown indication
     Route: 065
  5. XGEVA [Concomitant]
     Active Substance: DENOSUMAB
     Indication: Product used for unknown indication
     Route: 065
  6. ATOVAQUONE\PROGUANIL [Concomitant]
     Active Substance: ATOVAQUONE\PROGUANIL
     Indication: Product used for unknown indication
     Route: 065
  7. ACYLOVIR [Concomitant]
     Indication: Product used for unknown indication
     Route: 065
  8. LEVOTHYROXINE [Concomitant]
     Active Substance: LEVOTHYROXINE
     Indication: Product used for unknown indication
     Route: 065
  9. CALCIUM COMPOUNDS [Concomitant]
     Indication: Product used for unknown indication
     Route: 065
  10. FISH OIL [Concomitant]
     Active Substance: FISH OIL
     Indication: Product used for unknown indication
     Route: 065
  11. VITAMINS [Concomitant]
     Active Substance: VITAMINS
     Indication: Product used for unknown indication
     Route: 065
  12. VITAMINS [Concomitant]
     Active Substance: VITAMINS
     Indication: Product used for unknown indication
     Route: 065
  13. VELCADE [Concomitant]
     Active Substance: BORTEZOMIB
     Indication: Product used for unknown indication
     Route: 065
  14. ZOMETA [Concomitant]
     Active Substance: ZOLEDRONIC ACID
     Indication: Product used for unknown indication
     Route: 065

REACTIONS (7)
  - Tumour pain [Recovering/Resolving]
  - Skin sensitisation [Unknown]
  - Product dose omission issue [Unknown]
  - Myalgia [Unknown]
  - Bone pain [Unknown]
  - Pain in extremity [Unknown]
  - Rash [Unknown]
